FAERS Safety Report 8430456-9 (Version None)
Quarter: 2012Q2

REPORT INFORMATION
  Report Type: 
  Country: None (occurrence: None)
  Receive Date: 20120323
  Receipt Date: 20111128
  Transmission Date: 20120825
  Serious: Yes (Other)
  Sender: FDA-Public Use
  Company Number: 163-21880-11073111

PATIENT
  Age: 58 Year
  Sex: Male

DRUGS (16)
  1. ATIVAN [Concomitant]
  2. COMPAZINE (HYDROCHLORPERAZINE EDISYLATE) [Concomitant]
  3. OXYCONTIN [Concomitant]
  4. WELLBUTRIN [Concomitant]
  5. LISINOPRIL [Concomitant]
  6. IMODIUM [Concomitant]
  7. SYNTHROID [Concomitant]
  8. REVLIMID [Suspect]
     Indication: MULTIPLE MYELOMA
     Dosage: 25 MG, DAILY X 21/28 DAYS, PO
     Route: 048
     Dates: start: 20090313
  9. REVLIMID [Suspect]
     Indication: MULTIPLE MYELOMA
     Dosage: 25 MG, DAILY X 21/28 DAYS, PO
     Route: 048
     Dates: start: 20110607
  10. SALAGEN [Concomitant]
  11. BLOOD TRANSFUSION (BLOOD AND RELATED PRODUCTS) [Suspect]
     Indication: FULL BLOOD COUNT DECREASED
     Dosage: UNK
     Dates: start: 20090626
  12. DOXYCYCLIN (DOXYCYCLINE HYDROCHLORIDE) [Concomitant]
  13. OXYCODONE HCL [Concomitant]
  14. COUMADIN [Concomitant]
  15. PACKED RED BLOOD CELLS (BLOOD CELLS, PACKED HUMAN) [Concomitant]
  16. GABAPENTIN [Concomitant]

REACTIONS (1)
  - FULL BLOOD COUNT DECREASED [None]
